FAERS Safety Report 5032187-4 (Version None)
Quarter: 2006Q2

REPORT INFORMATION
  Report Type: 
  Country: None (occurrence: None)
  Receive Date: 20060619
  Receipt Date: 20060609
  Transmission Date: 20061013
  Serious: Yes (Other)
  Sender: FDA-Public Use
  Company Number: 2006-05-1427

PATIENT
  Age: 17 Year
  Sex: Female

DRUGS (3)
  1. INTRON A [Suspect]
     Indication: HEPATITIS C
     Dosage: TIW SUBCUTANEOUS
     Route: 058
     Dates: start: 19930101
  2. PEG-INTRON [Suspect]
     Indication: HEPATITIS C
     Dosage: 100 MCG QW SUBCUTANEOUS
     Route: 058
     Dates: start: 20010101
  3. RIBAVIRIN [Suspect]
     Indication: HEPATITIS C
     Dosage: 5 TABS QD ORAL
     Route: 048
     Dates: start: 20010101

REACTIONS (8)
  - ANTI-THYROID ANTIBODY POSITIVE [None]
  - AUTOIMMUNE DISORDER [None]
  - BASEDOW'S DISEASE [None]
  - DIABETES MELLITUS INSULIN-DEPENDENT [None]
  - HEPATIC FUNCTION ABNORMAL [None]
  - HYPERTHYROIDISM [None]
  - HYPOTHYROIDISM [None]
  - OEDEMA PERIPHERAL [None]
